FAERS Safety Report 23700333 (Version 2)
Quarter: 2024Q2

REPORT INFORMATION
  Report Type: Spontaneous
  Country: JP (occurrence: JP)
  Receive Date: 20240403
  Receipt Date: 20240416
  Transmission Date: 20240716
  Serious: Yes (Hospitalization, Other)
  Sender: FDA-Public Use
  Company Number: JP-BIOVITRUM-2024-JP-002089

PATIENT

DRUGS (2)
  1. EMPAVELI [Suspect]
     Active Substance: PEGCETACOPLAN
     Indication: Paroxysmal nocturnal haemoglobinuria
     Dosage: TWICE A WEEK
     Route: 058
  2. EMPAVELI [Suspect]
     Active Substance: PEGCETACOPLAN
     Dosage: THREE TIMES A WEEK
     Route: 058

REACTIONS (2)
  - Haemolysis [Not Recovered/Not Resolved]
  - Influenza [Not Recovered/Not Resolved]
